FAERS Safety Report 16919067 (Version 3)
Quarter: 2020Q2

REPORT INFORMATION
  Report Type: Spontaneous
  Country: US (occurrence: US)
  Receive Date: 20191015
  Receipt Date: 20200427
  Transmission Date: 20200713
  Serious: No
  Sender: FDA-Public Use
  Company Number: US-BAYER-2019-186027

PATIENT
  Age: 27 Year
  Sex: Female
  Weight: 64.85 kg

DRUGS (1)
  1. KYLEENA [Suspect]
     Active Substance: LEVONORGESTREL
     Indication: CONTRACEPTION
     Dosage: 17.5 MCG/24HR, CONT
     Route: 015
     Dates: start: 20190703, end: 20190724

REACTIONS (5)
  - Abdominal pain lower [None]
  - Weight increased [None]
  - Acne [None]
  - Device expulsion [Recovered/Resolved]
  - Vaginal haemorrhage [None]

NARRATIVE: CASE EVENT DATE: 20190724
